FAERS Safety Report 7108347-5 (Version None)
Quarter: 2010Q4

REPORT INFORMATION
  Report Type: 
  Country: None (occurrence: None)
  Receive Date: 20101117
  Receipt Date: 20101116
  Transmission Date: 20110411
  Serious: Yes (Hospitalization, Other)
  Sender: FDA-Public Use
  Company Number: FI-BRISTOL-MYERS SQUIBB COMPANY-15378748

PATIENT
  Age: 62 Year
  Sex: Female

DRUGS (11)
  1. ORENCIA [Suspect]
     Indication: RHEUMATOID ARTHRITIS
     Dates: start: 20091123, end: 20100809
  2. SOLOMET [Concomitant]
  3. SOMAC [Concomitant]
  4. LEVOTHYROXINE [Concomitant]
     Dosage: THYROSIN
  5. MAREVAN [Concomitant]
  6. REUMACON [Concomitant]
     Dosage: CPH82
  7. AERIUS [Concomitant]
  8. GLUCOSAMINE [Concomitant]
  9. GABAPENTIN [Concomitant]
  10. FURESIS [Concomitant]
  11. SPESICOR [Concomitant]

REACTIONS (2)
  - BREAST CANCER METASTATIC [None]
  - PLEURAL EFFUSION [None]
